FAERS Safety Report 25406226 (Version 1)
Quarter: 2025Q2

REPORT INFORMATION
  Report Type: Spontaneous
  Country: GB (occurrence: GB)
  Receive Date: 20250606
  Receipt Date: 20250606
  Transmission Date: 20250716
  Serious: Yes (Other)
  Sender: AUROBINDO
  Company Number: GB-MHRA-MED-202505221629368900-GVKLJ

PATIENT
  Sex: Female

DRUGS (1)
  1. ATORVASTATIN [Suspect]
     Active Substance: ATORVASTATIN
     Indication: Lipids
     Route: 065

REACTIONS (3)
  - Myalgia [Recovered/Resolved]
  - Brain fog [Recovered/Resolved]
  - Headache [Recovered/Resolved]
